FAERS Safety Report 24029761 (Version 1)
Quarter: 2024Q2

REPORT INFORMATION
  Report Type: Spontaneous
  Country: US (occurrence: US)
  Receive Date: 20240628
  Receipt Date: 20240628
  Transmission Date: 20240716
  Serious: Yes (Hospitalization, Other)
  Sender: FDA-Public Use
  Company Number: None

PATIENT
  Age: 72 Year
  Sex: Male

DRUGS (3)
  1. TACROLIMUS [Suspect]
     Active Substance: TACROLIMUS
     Indication: Immunosuppressant drug therapy
     Dosage: TACROLIMUS WAS PRESCRIBED AS 4 MG TWICE DAILY
  2. TACROLIMUS [Suspect]
     Active Substance: TACROLIMUS
     Dosage: TACROLIMUS 2 MG TWICE DAILY
  3. MYCOPHENOLATE MOFETIL [Suspect]
     Active Substance: MYCOPHENOLATE MOFETIL
     Indication: Immunosuppressant drug therapy
     Dosage: MYCOPHENOLATE MOFETIL 360 MG TWICE DAILY

REACTIONS (1)
  - Pulmonary nocardiosis [Recovering/Resolving]
